FAERS Safety Report 23016035 (Version 1)
Quarter: 2023Q4

REPORT INFORMATION
  Report Type: Spontaneous
  Country: JP (occurrence: None)
  Receive Date: 20231002
  Receipt Date: 20231002
  Transmission Date: 20240110
  Serious: Yes (Life-Threatening, Hospitalization, Other)
  Sender: FDA-Public Use
  Company Number: 2023A222236

PATIENT
  Sex: Female

DRUGS (2)
  1. IRESSA [Suspect]
     Active Substance: GEFITINIB
     Indication: Non-small cell lung cancer
     Route: 048
  2. TAGRISSO [Suspect]
     Active Substance: OSIMERTINIB
     Indication: Non-small cell lung cancer
     Route: 048

REACTIONS (5)
  - Metastases to central nervous system [Unknown]
  - Hydrocephalus [Unknown]
  - Subarachnoid haemorrhage [Unknown]
  - EGFR gene mutation [Unknown]
  - Epilepsy [Unknown]
